FAERS Safety Report 5469773-3 (Version None)
Quarter: 2007Q3

REPORT INFORMATION
  Report Type: 
  Country: None (occurrence: None)
  Receive Date: 20070927
  Receipt Date: 20070411
  Transmission Date: 20080115
  Serious: No
  Sender: FDA-Public Use
  Company Number: US-AMGEN-KDL219117

PATIENT
  Sex: Female

DRUGS (4)
  1. NEUPOGEN [Suspect]
     Indication: NEUTROPENIA
     Dates: start: 20070301
  2. ATENOLOL [Concomitant]
  3. METFORMIN [Concomitant]
  4. DIABETIC MEDICATION NOS [Concomitant]

REACTIONS (2)
  - BONE PAIN [None]
  - CHEST DISCOMFORT [None]
